FAERS Safety Report 12160263 (Version 1)
Quarter: 2016Q1

REPORT INFORMATION
  Report Type: Spontaneous
  Country: US (occurrence: US)
  Receive Date: 20160308
  Receipt Date: 20160308
  Transmission Date: 20160526
  Serious: No
  Sender: FDA-Public Use
  Company Number: US-AMNEAL PHARMACEUTICALS-2015AMN00004

PATIENT
  Age: 68 Year
  Sex: Female

DRUGS (6)
  1. ZONISAMIDE. [Concomitant]
     Active Substance: ZONISAMIDE
  2. SULFAMETHOXAZOLE AND TRIMETHOPRIM [Suspect]
     Active Substance: SULFAMETHOXAZOLE\TRIMETHOPRIM
     Indication: URINARY TRACT INFECTION
     Dosage: 1 TABLETS, 2X/DAY
     Route: 048
     Dates: start: 20150806, end: 20150808
  3. DIFLUNISAL. [Concomitant]
     Active Substance: DIFLUNISAL
     Dosage: UNK
  4. CEFUROXIME. [Concomitant]
     Active Substance: CEFUROXIME
  5. PREDNISOLONE. [Concomitant]
     Active Substance: PREDNISOLONE
  6. INDOMETHACIN. [Concomitant]
     Active Substance: INDOMETHACIN

REACTIONS (5)
  - Pruritus [Recovered/Resolved]
  - Influenza like illness [Recovered/Resolved]
  - Headache [Recovered/Resolved]
  - Abdominal pain upper [Recovered/Resolved]
  - Pyrexia [Recovered/Resolved]

NARRATIVE: CASE EVENT DATE: 20150806
